FAERS Safety Report 6991396-5 (Version None)
Quarter: 2010Q3

REPORT INFORMATION
  Report Type: 
  Country: None (occurrence: None)
  Receive Date: 20100916
  Receipt Date: 20090811
  Transmission Date: 20110219
  Serious: No
  Sender: FDA-Public Use
  Company Number: US-WYE-H10577809

PATIENT
  Age: 56 Year
  Sex: Female
  Weight: 64.92 kg

DRUGS (8)
  1. ADVIL PM [Suspect]
     Indication: INSOMNIA
     Route: 048
     Dates: start: 20090809, end: 20090810
  2. GLUCOSAMINE [Concomitant]
  3. HORSE CHESTNUT EXTRACT [Concomitant]
  4. LEVOTHYROXINE [Concomitant]
  5. FLUCONAZOLE [Concomitant]
  6. UROXATRAL [Concomitant]
  7. MULTI-VITAMINS [Concomitant]
  8. CALCIUM WITH VITAMIN D [Concomitant]

REACTIONS (3)
  - DRUG INEFFECTIVE [None]
  - FEELING JITTERY [None]
  - RESTLESS LEGS SYNDROME [None]
